FAERS Safety Report 14773116 (Version 3)
Quarter: 2018Q3

REPORT INFORMATION
  Report Type: Report from Study
  Country: DE (occurrence: DE)
  Receive Date: 20180418
  Receipt Date: 20180725
  Transmission Date: 20181010
  Serious: Yes (Other)
  Sender: FDA-Public Use
  Company Number: DE-TORRENT-00008095

PATIENT
  Age: 47 Year
  Sex: Male

DRUGS (6)
  1. TETRAZEPAM [Suspect]
     Active Substance: TETRAZEPAM
     Indication: PRODUCT USED FOR UNKNOWN INDICATION
     Dosage: UNKNOWN
  2. BUPRENORPHINE. [Suspect]
     Active Substance: BUPRENORPHINE
     Indication: PRODUCT USED FOR UNKNOWN INDICATION
     Dosage: UNKNOWN
  3. QUETIAPINE. [Suspect]
     Active Substance: QUETIAPINE
     Indication: PRODUCT USED FOR UNKNOWN INDICATION
     Dosage: UNKNOWN
  4. 3,4?METHYLENEDIOXYPYROVALERONE [Suspect]
     Active Substance: METHYLENEDIOXYPYROVALERONE HYDROCHLORIDE
     Indication: PRODUCT USED FOR UNKNOWN INDICATION
     Dosage: UNKNOWN
  5. CITALOPRAM [Suspect]
     Active Substance: CITALOPRAM HYDROBROMIDE
     Indication: PRODUCT USED FOR UNKNOWN INDICATION
     Dosage: UNKNOWN
  6. MIRTAZAPINE. [Suspect]
     Active Substance: MIRTAZAPINE
     Indication: PRODUCT USED FOR UNKNOWN INDICATION
     Dosage: UNKNOWN

REACTIONS (11)
  - Vestibular disorder [Unknown]
  - Toxicity to various agents [Unknown]
  - Drug screen positive [Unknown]
  - Impaired driving ability [Unknown]
  - Substance abuse [Unknown]
  - Fine motor skill dysfunction [Unknown]
  - Restlessness [Unknown]
  - Disturbance in attention [Unknown]
  - Coordination abnormal [Unknown]
  - Logorrhoea [Unknown]
  - Hyporesponsive to stimuli [Unknown]
